FAERS Safety Report 5025453-X (Version None)
Quarter: 2006Q2

REPORT INFORMATION
  Report Type: 
  Country: None (occurrence: None)
  Receive Date: 20060608
  Receipt Date: 20060522
  Transmission Date: 20061013
  Serious: Yes (Hospitalization, Other)
  Sender: FDA-Public Use
  Company Number: DSA_70907_2006

PATIENT
  Age: 18 Year
  Sex: Female

DRUGS (2)
  1. AZATHIOPRINE [Suspect]
     Indication: CENTRAL NERVOUS SYSTEM INFLAMMATION
     Dosage: 50 MG QDAY PO
     Route: 048
  2. AZATHIOPRINE [Suspect]
     Indication: DEMYELINATION
     Dosage: 50 MG QDAY PO
     Route: 048

REACTIONS (9)
  - ENZYME ABNORMALITY [None]
  - FATIGUE [None]
  - HAEMOGLOBIN DECREASED [None]
  - HEADACHE [None]
  - PLATELET COUNT DECREASED [None]
  - PYREXIA [None]
  - SPONTANEOUS HAEMATOMA [None]
  - VERTIGO [None]
  - WHITE BLOOD CELL COUNT DECREASED [None]
